FAERS Safety Report 7794642-3 (Version None)
Quarter: 2011Q4

REPORT INFORMATION
  Report Type: 
  Country: None (occurrence: None)
  Receive Date: 20111004
  Receipt Date: 20110920
  Transmission Date: 20120403
  Serious: Yes (Hospitalization, Other)
  Sender: FDA-Public Use
  Company Number: JP-ROCHE-798342

PATIENT
  Sex: Male
  Weight: 78 kg

DRUGS (16)
  1. XELODA [Suspect]
     Indication: METASTATIC GASTRIC CANCER
     Dosage: DOSAGE IS UNCERTAIN.
     Route: 048
  2. CISPLATIN [Suspect]
     Indication: METASTATIC GASTRIC CANCER
     Dosage: FORTH COURSE OF THE CHEMOTHERAPY, INTERRUPTED
     Route: 041
     Dates: start: 20110416, end: 20110709
  3. GASTROM [Concomitant]
     Route: 048
  4. SELBEX [Concomitant]
     Route: 048
  5. HERCEPTIN [Suspect]
     Indication: METASTATIC GASTRIC CANCER
     Route: 041
     Dates: start: 20110416, end: 20110416
  6. ACETAMINOPHEN [Concomitant]
     Route: 048
  7. CARNACULIN [Concomitant]
     Route: 048
  8. HERCEPTIN [Suspect]
     Route: 041
     Dates: start: 20110507, end: 20110709
  9. JUZEN-TAIHO-TO [Concomitant]
     Route: 048
  10. HERCEPTIN [Suspect]
     Dates: start: 20110817, end: 20110817
  11. CISPLATIN [Suspect]
     Dosage: FORTH COURSE OF THE CHEMOTHERAPY, INTERRUPTED
     Route: 041
  12. RAMELTEON [Concomitant]
     Route: 048
     Dates: start: 20110416, end: 20110709
  13. XELODA [Suspect]
     Dosage: FORTH COURSE OF THE CHEMOTHERAPY,  INTERRUPTED.
     Route: 048
  14. BEZAFIBRATE [Concomitant]
     Route: 048
  15. VITAMIN B6 [Concomitant]
     Route: 048
  16. LANSOPRAZOLE [Concomitant]
     Route: 048

REACTIONS (3)
  - HAEMOGLOBIN DECREASED [None]
  - RENAL DISORDER [None]
  - PALMAR-PLANTAR ERYTHRODYSAESTHESIA SYNDROME [None]
